FAERS Safety Report 11858701 (Version 1)
Quarter: 2015Q4

REPORT INFORMATION
  Report Type: Spontaneous
  Country: US (occurrence: US)
  Receive Date: 20151222
  Receipt Date: 20151222
  Transmission Date: 20160305
  Serious: Yes (Other)
  Sender: FDA-Public Use
  Company Number: US-JNJFOC-20151208112

PATIENT
  Age: 35 Year
  Sex: Female
  Weight: 46.72 kg

DRUGS (2)
  1. LISTERINE ANTISEPTIC MOUTHWASH [Suspect]
     Active Substance: EUCALYPTOL\MENTHOL\METHYL SALICYLATE\THYMOL
     Indication: PRODUCT USED FOR UNKNOWN INDICATION
     Route: 065
  2. LISTERINE TOOTHPASTE UNSPECIFIED [Suspect]
     Active Substance: EUCALYPTOL\MENTHOL\METHYL SALICYLATE\SODIUM MONOFLUOROPHOSPHATE\THYMOL
     Indication: PRODUCT USED FOR UNKNOWN INDICATION
     Route: 065

REACTIONS (3)
  - Haematemesis [Unknown]
  - Tongue haemorrhage [Unknown]
  - Tooth socket haemorrhage [Unknown]
